FAERS Safety Report 8311736-4 (Version None)
Quarter: 2012Q2

REPORT INFORMATION
  Report Type: 
  Country: None (occurrence: None)
  Receive Date: 20120425
  Receipt Date: 20120418
  Transmission Date: 20120825
  Serious: Yes (Hospitalization)
  Sender: FDA-Public Use
  Company Number: JP-EISAI INC-E7389-02332-SPO-JP

PATIENT
  Age: 55 Year
  Sex: Female
  Weight: 54 kg

DRUGS (3)
  1. MORPHINE HYDROCHLORIDE [Suspect]
  2. FENTANYL-100 [Concomitant]
  3. HALAVEN [Suspect]
     Indication: BREAST CANCER RECURRENT
     Route: 041
     Dates: start: 20120411

REACTIONS (3)
  - GAIT DISTURBANCE [None]
  - BACK PAIN [None]
  - PYREXIA [None]
